FAERS Safety Report 21564178 (Version 1)
Quarter: 2022Q4

REPORT INFORMATION
  Report Type: Other
  Country: ES (occurrence: ES)
  Receive Date: 20221108
  Receipt Date: 20221108
  Transmission Date: 20230112
  Serious: Yes (Hospitalization)
  Sender: FDA-Public Use
  Company Number: ES-CELLTRION INC.-2022ES018401

PATIENT

DRUGS (11)
  1. RITUXIMAB [Suspect]
     Active Substance: RITUXIMAB
     Indication: Diffuse large B-cell lymphoma
     Dosage: 375 MG/M2 ON DAY 1 OF EACH 21-DAY CYCLE
     Route: 042
  2. VINCRISTINE [Suspect]
     Active Substance: VINCRISTINE
     Indication: Diffuse large B-cell lymphoma
     Dosage: 1.4 MG/M2 (MAXIMUM TOTAL 2 MG) ON DAY 1 OF EACH 21-DAY CYCLE
     Route: 042
     Dates: start: 20220816, end: 20220816
  3. ACALABRUTINIB [Suspect]
     Active Substance: ACALABRUTINIB
     Indication: Diffuse large B-cell lymphoma
     Dosage: 100 MG, EVERY 12 HOUR
     Route: 048
  4. CYCLOPHOSPHAMIDE [Suspect]
     Active Substance: CYCLOPHOSPHAMIDE
     Indication: Diffuse large B-cell lymphoma
     Dosage: 750 MG/M2 ON DAY 1 OF EACH 21-DAY CYCLE
     Route: 042
     Dates: start: 20220816, end: 20220816
  5. DOXORUBICIN [Suspect]
     Active Substance: DOXORUBICIN
     Indication: Diffuse large B-cell lymphoma
     Dosage: 50 MG/M2 ON DAY 1 OF EACH 21-DAY CYCLE
     Route: 042
     Dates: start: 20220816, end: 20220816
  6. PREDNISONE [Concomitant]
     Active Substance: PREDNISONE
     Indication: Diffuse large B-cell lymphoma
     Dosage: 100 MG ONCE DAILY ON DAYS 1 TO 5 OF EACH 21-DAY CYCLE
     Route: 048
  7. ERITROMICINA [ERYTHROMYCIN PROPIONATE] [Concomitant]
     Dosage: 200 MG, Q6HR
     Route: 048
     Dates: start: 20220829
  8. GRANULOCYTE COLONY-STIMULATING FACTOR NOS [Concomitant]
     Active Substance: GRANULOCYTE COLONY-STIMULATING FACTOR NOS
     Indication: Diffuse large B-cell lymphoma
  9. OMEPRAZOL [OMEPRAZOLE MAGNESIUM] [Concomitant]
     Dosage: 20 MG, QD
     Route: 042
     Dates: start: 20220826
  10. PROPRANOLOL [Concomitant]
     Active Substance: PROPRANOLOL HYDROCHLORIDE
     Dosage: 10 MG, EVERY 12 HOUR
     Route: 048
     Dates: start: 20220825
  11. LEVOFLOXACIN [Concomitant]
     Active Substance: LEVOFLOXACIN
     Dosage: 500 MG, QD
     Route: 042
     Dates: start: 20220825

REACTIONS (1)
  - Malaise [Recovered/Resolved]

NARRATIVE: CASE EVENT DATE: 20220825
